FAERS Safety Report 15890939 (Version 1)
Quarter: 2019Q1

REPORT INFORMATION
  Report Type: Spontaneous
  Country: US (occurrence: US)
  Receive Date: 20190130
  Receipt Date: 20190130
  Transmission Date: 20190417
  Serious: Yes (Life-Threatening, Other)
  Sender: FDA-Public Use
  Company Number: US-ELI_LILLY_AND_COMPANY-US201901012393

PATIENT
  Age: 73 Year
  Sex: Male

DRUGS (2)
  1. GLUCAGON. [Suspect]
     Active Substance: GLUCAGON
     Indication: TYPE 1 DIABETES MELLITUS
     Dosage: UNK, UNKNOWN
     Route: 058
  2. HUMALOG [Suspect]
     Active Substance: INSULIN LISPRO
     Indication: TYPE 1 DIABETES MELLITUS
     Dosage: INSULIN PUMP: SLIDING SCALE AND 1/10 UNIT PER HOUR BASAL RATE
     Route: 058
     Dates: start: 1968

REACTIONS (5)
  - Seizure [Recovered/Resolved]
  - Dehydration [Recovered/Resolved]
  - Respiratory arrest [Recovered/Resolved]
  - Blood glucose decreased [Recovered/Resolved]
  - Blood glucose increased [Recovered/Resolved]

NARRATIVE: CASE EVENT DATE: 201811
